FAERS Safety Report 21792635 (Version 1)
Quarter: 2022Q4

REPORT INFORMATION
  Report Type: Spontaneous
  Country: MY (occurrence: MY)
  Receive Date: 20221229
  Receipt Date: 20221229
  Transmission Date: 20230112
  Serious: Yes (Other)
  Sender: FDA-Public Use
  Company Number: MY-SUN PHARMACEUTICAL INDUSTRIES LTD-2022R1-370843

PATIENT
  Age: 46 Year
  Sex: Female

DRUGS (1)
  1. CLOPIDOGREL BISULFATE [Suspect]
     Active Substance: CLOPIDOGREL BISULFATE
     Indication: Acute coronary syndrome
     Dosage: 300 MILLIGRAM, DAILY
     Route: 048

REACTIONS (6)
  - Periorbital swelling [Recovering/Resolving]
  - Pruritus [Recovering/Resolving]
  - Musculoskeletal stiffness [Recovering/Resolving]
  - Ocular hyperaemia [Recovering/Resolving]
  - Throat tightness [Recovering/Resolving]
  - Chest discomfort [Recovering/Resolving]
